FAERS Safety Report 12262184 (Version 1)
Quarter: 2016Q2

REPORT INFORMATION
  Report Type: Spontaneous
  Country: GB (occurrence: GB)
  Receive Date: 20160413
  Receipt Date: 20160413
  Transmission Date: 20160815
  Serious: Yes (Life-Threatening, Disabling, Other)
  Sender: FDA-Public Use
  Company Number: GB-GLAXOSMITHKLINE-GB2016047229

PATIENT
  Age: 61 Year
  Sex: Female
  Weight: 102 kg

DRUGS (4)
  1. FOSTAIR [Concomitant]
     Active Substance: BECLOMETHASONE\FORMOTEROL
     Dosage: 2 DF, BID
     Dates: start: 20141219
  2. VENTOLIN [Concomitant]
     Active Substance: ALBUTEROL SULFATE
     Route: 055
     Dates: start: 20140127
  3. RELVAR ELLIPTA [Suspect]
     Active Substance: FLUTICASONE FUROATE\VILANTEROL TRIFENATATE
     Indication: ASTHMA PROPHYLAXIS
     Dosage: UNK
     Route: 055
     Dates: start: 20160115
  4. PREDNISOLONE. [Concomitant]
     Active Substance: PREDNISOLONE
     Dosage: 5 DF, UNK
     Dates: start: 20160229, end: 20160306

REACTIONS (3)
  - Headache [Recovering/Resolving]
  - Asthma [Recovering/Resolving]
  - Circulatory collapse [Unknown]

NARRATIVE: CASE EVENT DATE: 20160115
